FAERS Safety Report 5558979-0 (Version None)
Quarter: 2007Q4

REPORT INFORMATION
  Report Type: 
  Country: None (occurrence: None)
  Receive Date: 20071214
  Receipt Date: 20071129
  Transmission Date: 20080405
  Serious: Yes (Other)
  Sender: FDA-Public Use
  Company Number: FR-PFIZER INC-2007104229

PATIENT
  Sex: Male

DRUGS (3)
  1. XANAX [Suspect]
     Indication: ANXIETY
     Dosage: DAILY DOSE:.25MG
  2. BIMATOPROST [Concomitant]
  3. BRINZOLAMIDE [Concomitant]

REACTIONS (3)
  - EXTRASYSTOLES [None]
  - HYPERTENSION [None]
  - VERTIGO [None]
